FAERS Safety Report 12169076 (Version 5)
Quarter: 2016Q3

REPORT INFORMATION
  Report Type: Report from Study
  Country: US (occurrence: US)
  Receive Date: 20160310
  Receipt Date: 20160802
  Transmission Date: 20161109
  Serious: Yes (Hospitalization, Other)
  Sender: FDA-Public Use
  Company Number: US-GILEAD-2016-0202874

PATIENT
  Age: 79 Year
  Sex: Male

DRUGS (2)
  1. AMBRISENTAN [Suspect]
     Active Substance: AMBRISENTAN
     Indication: PRODUCT USED FOR UNKNOWN INDICATION
     Dosage: 10 MG, QD
     Route: 065
     Dates: start: 20071129
  2. TYVASO [Concomitant]
     Active Substance: TREPROSTINIL

REACTIONS (6)
  - End stage renal disease [Unknown]
  - Peripheral swelling [Unknown]
  - Haemorrhage [Unknown]
  - Wound closure [Unknown]
  - Dialysis [Unknown]
  - Complication associated with device [Unknown]
